FAERS Safety Report 13752825 (Version 4)
Quarter: 2017Q4

REPORT INFORMATION
  Report Type: Report from Study
  Country: US (occurrence: US)
  Receive Date: 20170714
  Receipt Date: 20171002
  Transmission Date: 20180320
  Serious: No
  Sender: FDA-Public Use
  Company Number: US-AMGEN-USASL2017104510

PATIENT
  Age: 36 Year
  Sex: Female

DRUGS (1)
  1. ENBREL [Suspect]
     Active Substance: ETANERCEPT
     Indication: RHEUMATOID ARTHRITIS
     Dosage: 50 MG, QWK
     Route: 065

REACTIONS (12)
  - Pain in extremity [Not Recovered/Not Resolved]
  - Fungal infection [Recovered/Resolved]
  - Wrong technique in product usage process [Unknown]
  - Injection site discolouration [Unknown]
  - Injection site bruising [Recovering/Resolving]
  - Injection site haemorrhage [Not Recovered/Not Resolved]
  - Injection site pain [Unknown]
  - Injection site pruritus [Not Recovered/Not Resolved]
  - Injection site warmth [Unknown]
  - Injection site erythema [Unknown]
  - Feeling hot [Recovering/Resolving]
  - Injection site swelling [Unknown]
